FAERS Safety Report 23340830 (Version 1)
Quarter: 2023Q4

REPORT INFORMATION
  Report Type: Spontaneous
  Country: US (occurrence: US)
  Receive Date: 20231227
  Receipt Date: 20231227
  Transmission Date: 20240110
  Serious: Yes (Other)
  Sender: FDA-Public Use
  Company Number: US-BRISTOL-MYERS SQUIBB COMPANY-2023-185777

PATIENT
  Age: 60 Year
  Sex: Male
  Weight: 120.66 kg

DRUGS (1)
  1. REVLIMID [Suspect]
     Active Substance: LENALIDOMIDE
     Indication: Plasma cell myeloma
     Dosage: 3W,1W OFF
     Route: 048

REACTIONS (3)
  - Acute respiratory failure [Unknown]
  - Respiratory syncytial virus infection [Unknown]
  - Pneumonia [Unknown]
